FAERS Safety Report 23918925 (Version 4)
Quarter: 2024Q2

REPORT INFORMATION
  Report Type: Spontaneous
  Country: EG (occurrence: EG)
  Receive Date: 20240530
  Receipt Date: 20240625
  Transmission Date: 20240717
  Serious: Yes (Hospitalization, Other)
  Sender: FDA-Public Use
  Company Number: EG-ROCHE-3570696

PATIENT
  Age: 74 Year
  Sex: Male

DRUGS (4)
  1. VABYSMO [Suspect]
     Active Substance: FARICIMAB\FARICIMAB-SVOA
     Indication: Product used for unknown indication
     Dosage: IN BOTH EYES
     Route: 065
     Dates: start: 20240522
  2. LUCENTIS [Concomitant]
     Active Substance: RANIBIZUMAB
  3. EYLEA [Concomitant]
     Active Substance: AFLIBERCEPT
  4. BROLUCIZUMAB [Concomitant]
     Active Substance: BROLUCIZUMAB

REACTIONS (4)
  - Eye inflammation [Unknown]
  - Retinal vasculitis [Unknown]
  - Vitrectomy [Unknown]
  - Endophthalmitis [Unknown]

NARRATIVE: CASE EVENT DATE: 20240523
